FAERS Safety Report 20608667 (Version 2)
Quarter: 2022Q2

REPORT INFORMATION
  Report Type: Spontaneous
  Country: PT (occurrence: FR)
  Receive Date: 20220317
  Receipt Date: 20220406
  Transmission Date: 20220720
  Serious: Yes (Hospitalization)
  Sender: FDA-Public Use
  Company Number: None

PATIENT

DRUGS (3)
  1. ESLICARBAZEPINE ACETATE [Suspect]
     Active Substance: ESLICARBAZEPINE ACETATE
     Indication: Foetal exposure during pregnancy
     Dosage: 1600 MG, QD (MATERNAL DOSE-1600 MG, 1X / DAY)
     Route: 064
     Dates: end: 20211117
  2. LAMOTRIGINE [Suspect]
     Active Substance: LAMOTRIGINE
     Indication: Foetal exposure during pregnancy
     Dosage: MATERNAL DOSE- 200 MG, 2X / DAY
     Route: 064
     Dates: end: 20211117
  3. BROMAZEPAM [Suspect]
     Active Substance: BROMAZEPAM
     Indication: Foetal exposure during pregnancy
     Dosage: MATERNAL DOSE: 3 MG, UNKNOWN
     Route: 064
     Dates: end: 20211117

REACTIONS (3)
  - Hypertonia [Not Recovered/Not Resolved]
  - Fontanelle bulging [Unknown]
  - Foetal exposure during pregnancy [Unknown]

NARRATIVE: CASE EVENT DATE: 20211117
